FAERS Safety Report 12779401 (Version 3)
Quarter: 2016Q4

REPORT INFORMATION
  Report Type: Spontaneous
  Country: US (occurrence: US)
  Receive Date: 20160926
  Receipt Date: 20161028
  Transmission Date: 20170207
  Serious: Yes (Hospitalization)
  Sender: FDA-Public Use
  Company Number: US-BAXTER-2016BAX048869

PATIENT
  Sex: Male

DRUGS (1)
  1. DIANEAL LOW CALCIUM PERITONEAL DIALYSIS SOLUTION WITH DEXTROSE [Suspect]
     Active Substance: CALCIUM CHLORIDE\DEXTROSE\MAGNESIUM CHLORIDE\SODIUM CHLORIDE\SODIUM LACTATE
     Indication: PERITONEAL DIALYSIS
     Route: 033
     Dates: end: 2016

REACTIONS (5)
  - Peritoneal perforation [Unknown]
  - Peritonitis bacterial [Recovered/Resolved]
  - Large intestine perforation [Unknown]
  - Complication associated with device [Unknown]
  - Infectious colitis [Unknown]

NARRATIVE: CASE EVENT DATE: 20160911
